FAERS Safety Report 10311612 (Version 2)
Quarter: 2014Q3

REPORT INFORMATION
  Report Type: Spontaneous
  Country: FR (occurrence: FR)
  Receive Date: 20140717
  Receipt Date: 20140717
  Transmission Date: 20150326
  Serious: Yes (Hospitalization)
  Sender: FDA-Public Use
  Company Number: FR-TEVA-311877ISR

PATIENT
  Age: 27 Year
  Sex: Female

DRUGS (6)
  1. LUTENYL [Suspect]
     Active Substance: NOMEGESTROL ACETATE
     Indication: OVARIAN CYST
     Route: 048
     Dates: start: 201012
  2. ASPEGIC [Suspect]
     Active Substance: ASPIRIN DL-LYSINE
     Indication: INFLUENZA LIKE ILLNESS
     Dates: start: 20101226
  3. LEELOO [Suspect]
     Active Substance: ETHINYL ESTRADIOL\LEVONORGESTREL
     Indication: ORAL CONTRACEPTION
     Dates: start: 201012
  4. PARACETAMOL [Suspect]
     Active Substance: ACETAMINOPHEN
     Indication: INFLUENZA LIKE ILLNESS
     Dates: start: 20101226
  5. NEO-CODION [Suspect]
     Active Substance: CODEINE\GRINDELIA HIRSUTULA FLOWERING TOP
     Indication: COUGH
     Dates: start: 20101229
  6. EXACYL [Suspect]
     Active Substance: TRANEXAMIC ACID
     Indication: OVARIAN CYST
     Dates: start: 201012

REACTIONS (4)
  - Pyrexia [Recovered/Resolved]
  - Rash [Recovered/Resolved]
  - Cough [Recovered/Resolved]
  - Toxic epidermal necrolysis [Recovered/Resolved with Sequelae]

NARRATIVE: CASE EVENT DATE: 20101229
